FAERS Safety Report 5944375-0 (Version None)
Quarter: 2008Q4

REPORT INFORMATION
  Report Type: 
  Country: None (occurrence: None)
  Receive Date: 20081106
  Receipt Date: 20081106
  Transmission Date: 20090506
  Serious: No
  Sender: FDA-Public Use
  Company Number: None

PATIENT
  Sex: Female
  Weight: 86.1834 kg

DRUGS (1)
  1. PROAIR HFA [Suspect]
     Indication: ASTHMA
     Dosage: 2 PUFFS AS NEEDED- PO
     Route: 048
     Dates: start: 20081020, end: 20081105

REACTIONS (3)
  - DRUG DELIVERY SYSTEM MALFUNCTION [None]
  - ORAL DISCOMFORT [None]
  - THROAT IRRITATION [None]
